FAERS Safety Report 5006342-3 (Version None)
Quarter: 2006Q2

REPORT INFORMATION
  Report Type: 
  Country: None (occurrence: None)
  Receive Date: 20060519
  Receipt Date: 20060516
  Transmission Date: 20061013
  Serious: Yes (Hospitalization, Other)
  Sender: FDA-Public Use
  Company Number: PT-JNJFOC-20031201335

PATIENT
  Sex: Female

DRUGS (2)
  1. DURAGESIC-100 [Suspect]
     Indication: PAIN
     Route: 062
  2. INSULIN [Concomitant]
     Route: 058

REACTIONS (3)
  - COLON CANCER [None]
  - DERMATITIS CONTACT [None]
  - DRUG ADMINISTRATION ERROR [None]
